FAERS Safety Report 25767569 (Version 1)
Quarter: 2025Q3

REPORT INFORMATION
  Report Type: Other
  Country: TR (occurrence: TR)
  Receive Date: 20250905
  Receipt Date: 20250905
  Transmission Date: 20251020
  Serious: Yes (Other)
  Sender: APRECIA PHARMACEUTICALS
  Company Number: TR-Aprecia Pharmaceuticals-APRE20250232

PATIENT

DRUGS (1)
  1. LEVETIRACETAM [Suspect]
     Active Substance: LEVETIRACETAM
     Indication: Epilepsy
     Route: 065

REACTIONS (1)
  - Lower respiratory tract infection [Unknown]
